FAERS Safety Report 5946551-X (Version None)
Quarter: 2008Q4

REPORT INFORMATION
  Report Type: 
  Country: None (occurrence: None)
  Receive Date: 20081110
  Receipt Date: 20081031
  Transmission Date: 20090506
  Serious: Yes (Other)
  Sender: FDA-Public Use
  Company Number: B0545494A

PATIENT
  Sex: Female

DRUGS (6)
  1. TRIZIVIR [Suspect]
     Indication: HIV INFECTION
     Dates: start: 20060727, end: 20060922
  2. KALETRA [Suspect]
     Indication: HIV INFECTION
     Dates: start: 20060727, end: 20060922
  3. KIVEXA [Suspect]
     Indication: HIV INFECTION
     Dates: end: 20080319
  4. NORVIR [Suspect]
     Indication: HIV INFECTION
     Dates: end: 20080319
  5. REYATAZ [Suspect]
     Indication: HIV INFECTION
     Dates: end: 20080319
  6. ANSATIPINE [Concomitant]

REACTIONS (1)
  - HEPATOTOXICITY [None]
